FAERS Safety Report 11053000 (Version 3)
Quarter: 2015Q4

REPORT INFORMATION
  Report Type: Spontaneous
  Country: US (occurrence: US)
  Receive Date: 20150421
  Receipt Date: 20151002
  Transmission Date: 20160304
  Serious: Yes (Other)
  Sender: FDA-Public Use
  Company Number: US-JNJFOC-20150322910

PATIENT
  Sex: Male

DRUGS (7)
  1. RISPERDAL [Suspect]
     Active Substance: RISPERIDONE
     Indication: MILD MENTAL RETARDATION
     Dosage: IN VARYING DOSES OF 0.75 MG AND 1 MG
     Route: 048
     Dates: start: 199908, end: 200512
  2. RISPERDAL [Suspect]
     Active Substance: RISPERIDONE
     Indication: AUTISM SPECTRUM DISORDER
     Dosage: IN VARYING DOSES OF 0.75 MG AND 1 MG
     Route: 048
     Dates: start: 199908, end: 200512
  3. RISPERDAL [Suspect]
     Active Substance: RISPERIDONE
     Indication: AGGRESSION
     Dosage: IN VARYING DOSES OF 0.75 MG AND 1 MG
     Route: 048
     Dates: start: 199908, end: 200512
  4. RISPERDAL [Suspect]
     Active Substance: RISPERIDONE
     Indication: ATTENTION DEFICIT/HYPERACTIVITY DISORDER
     Dosage: IN VARYING DOSES OF 0.75 MG AND 1 MG
     Route: 048
     Dates: start: 199908, end: 200512
  5. RISPERDAL [Suspect]
     Active Substance: RISPERIDONE
     Indication: AUTISM
     Dosage: IN VARYING DOSES OF 0.75 MG AND 1 MG
     Route: 048
     Dates: start: 199908, end: 200512
  6. RISPERDAL [Suspect]
     Active Substance: RISPERIDONE
     Indication: OBSESSIVE-COMPULSIVE DISORDER
     Dosage: IN VARYING DOSES OF 0.75 MG AND 1 MG
     Route: 048
     Dates: start: 199908, end: 200512
  7. RISPERDAL [Suspect]
     Active Substance: RISPERIDONE
     Indication: BIPOLAR DISORDER
     Dosage: IN VARYING DOSES OF 0.75 MG AND 1 MG
     Route: 048
     Dates: start: 199908, end: 200512

REACTIONS (3)
  - Galactorrhoea [Unknown]
  - Tardive dyskinesia [Unknown]
  - Gynaecomastia [Unknown]

NARRATIVE: CASE EVENT DATE: 2000
